FAERS Safety Report 5068961-8 (Version None)
Quarter: 2006Q3

REPORT INFORMATION
  Report Type: 
  Country: None (occurrence: None)
  Receive Date: 20060728
  Receipt Date: 20060719
  Transmission Date: 20061208
  Serious: Yes (Hospitalization)
  Sender: FDA-Public Use
  Company Number: 2006089123

PATIENT
  Sex: Male

DRUGS (2)
  1. MINOXIDIL [Suspect]
     Indication: MALE PATTERN BALDNESS
     Dosage: TOPICAL
     Route: 061
  2. FINASTERIDE [Suspect]
     Indication: MALE PATTERN BALDNESS
     Dosage: ORAL
     Route: 048

REACTIONS (1)
  - MYOCARDIAL INFARCTION [None]
